FAERS Safety Report 7607015-0 (Version None)
Quarter: 2011Q3

REPORT INFORMATION
  Report Type: 
  Country: None (occurrence: None)
  Receive Date: 20110713
  Receipt Date: 20110705
  Transmission Date: 20111222
  Serious: Yes (Hospitalization)
  Sender: FDA-Public Use
  Company Number: US-ELI_LILLY_AND_COMPANY-US201104006966

PATIENT
  Sex: Female
  Weight: 79.819 kg

DRUGS (18)
  1. PLAVIX [Concomitant]
     Indication: PROPHYLAXIS
     Dosage: UNK
     Dates: start: 20081201
  2. LASIX [Concomitant]
     Indication: OEDEMA
     Dosage: UNK
     Dates: start: 20020101
  3. LISINOPRIL [Concomitant]
     Indication: HYPERTENSION
     Dosage: UNK
     Dates: start: 20020101
  4. NITROGLYCERIN [Concomitant]
     Indication: CHEST PAIN
     Dosage: UNK UNK, PRN
     Dates: start: 20070507
  5. VITAMIN B-12 [Concomitant]
     Indication: PROPHYLAXIS
     Dosage: UNK
     Dates: start: 20090401
  6. FOLIC ACID [Concomitant]
     Indication: PROPHYLAXIS
     Dosage: UNK
     Dates: start: 20090401
  7. MAGNESIUM OXIDE [Concomitant]
     Indication: HYPOMAGNESAEMIA
     Dosage: UNK
     Dates: start: 20100928
  8. TRAVATAN [Concomitant]
     Indication: GLAUCOMA
     Dosage: UNK
     Dates: start: 20091109
  9. PEMETREXED [Suspect]
     Indication: NON-SMALL CELL LUNG CANCER
     Dosage: 500 MG/M2, DAY 1 EVERY 21 DAYS
     Route: 042
     Dates: start: 20090416, end: 20090617
  10. BEVACIZUMAB [Suspect]
     Indication: NON-SMALL CELL LUNG CANCER
     Dosage: 15 MG/KG, DAY 1 EVERY 21 DAYS
     Route: 042
     Dates: start: 20090416, end: 20090617
  11. BEVACIZUMAB [Suspect]
     Dosage: 15 MG/KG, DAY 1 EVERY 21 DAYS
     Dates: start: 20090708, end: 20110302
  12. IMDUR [Concomitant]
     Indication: HYPERTENSION
     Dosage: UNK
     Dates: start: 20080109
  13. LIPITOR [Concomitant]
     Indication: BLOOD CHOLESTEROL
     Dosage: UNK
     Dates: start: 20080819
  14. PRILOSEC [Concomitant]
     Indication: GASTROOESOPHAGEAL REFLUX DISEASE
     Dosage: UNK
     Dates: start: 20081223
  15. CARBOPLATIN [Suspect]
     Indication: NON-SMALL CELL LUNG CANCER
     Dosage: 6 AUC, DAY 1 EVERY 21 DAYS
     Route: 042
     Dates: start: 20090416, end: 20090617
  16. PEMETREXED [Suspect]
     Dosage: 500 MG/M2, DAY 1 EVERY 21 DAYS
     Route: 042
     Dates: start: 20090708, end: 20110302
  17. ZETIA [Concomitant]
     Indication: DYSLIPIDAEMIA
     Dosage: UNK
     Dates: start: 20080911
  18. LOPRESSOR [Concomitant]
     Indication: HYPERTENSION
     Dosage: UNK
     Dates: start: 20081201

REACTIONS (7)
  - HYPOKALAEMIA [None]
  - BLOOD GLUCOSE INCREASED [None]
  - METASTASES TO BONE [None]
  - NEOPLASM PROGRESSION [None]
  - HYPOMAGNESAEMIA [None]
  - HYPOCALCAEMIA [None]
  - NON-SMALL CELL LUNG CANCER [None]
